FAERS Safety Report 10020842 (Version 1)
Quarter: 2014Q1

REPORT INFORMATION
  Report Type: Report from Study
  Country: MX (occurrence: MX)
  Receive Date: 20140319
  Receipt Date: 20140319
  Transmission Date: 20141002
  Serious: Yes (Other)
  Sender: FDA-Public Use
  Company Number: MX-ROCHE-1365535

PATIENT
  Age: 50 Year
  Sex: Female
  Weight: 60 kg

DRUGS (5)
  1. HERCEPTIN [Suspect]
     Indication: BREAST CANCER METASTATIC
     Dosage: CURRENT THERAPY
     Route: 065
  2. TAMOXIFEN [Suspect]
     Indication: BREAST CANCER METASTATIC
     Dosage: CURRENT THERAPY
     Route: 065
  3. CYCLOPHOSPHAMIDE [Suspect]
     Indication: BREAST CANCER METASTATIC
     Dosage: PREVIOUS THERAPY
     Route: 065
  4. DOXORUBICIN [Suspect]
     Indication: BREAST CANCER METASTATIC
     Dosage: PREVIOUS THERAPY
     Route: 065
  5. FLUOROURACIL [Suspect]
     Indication: BREAST CANCER METASTATIC
     Dosage: PREVIOUS THERAPY
     Route: 065

REACTIONS (4)
  - Febrile neutropenia [Unknown]
  - Proteinuria [Unknown]
  - Vomiting [Unknown]
  - Disease progression [Unknown]
